FAERS Safety Report 12603303 (Version 1)
Quarter: 2016Q3

REPORT INFORMATION
  Report Type: Spontaneous
  Country: GB (occurrence: GB)
  Receive Date: 20160728
  Receipt Date: 20160728
  Transmission Date: 20161109
  Serious: Yes (Hospitalization, Other)
  Sender: FDA-Public Use
  Company Number: GB-WATSON-2016-15967

PATIENT
  Age: 72 Year
  Sex: Female
  Weight: 69 kg

DRUGS (34)
  1. ALENDRONIC ACID [Concomitant]
     Active Substance: ALENDRONIC ACID
     Indication: OSTEOPOROSIS
     Dosage: 70 MG, 1/WEEK
     Route: 048
     Dates: start: 1995, end: 20160213
  2. G-CSF [Concomitant]
     Active Substance: GRANULOCYTE COLONY-STIMULATING FACTOR NOS
     Indication: NEUTROPENIA
     Dosage: 300 ?G, DAILY
     Route: 058
     Dates: start: 20160217, end: 20160218
  3. ONDANSETRON [Concomitant]
     Active Substance: ONDANSETRON
     Indication: NAUSEA
     Dosage: 8 MG, DAILY
     Route: 048
     Dates: start: 20160218, end: 20160218
  4. PHOSPHATE SANDOZ [Concomitant]
     Indication: SEPSIS
     Dosage: UNK UNK, DAILY, EFFERVESCENT
     Route: 048
     Dates: start: 20160216, end: 20160216
  5. SODIUM CHLORIDE. [Concomitant]
     Active Substance: SODIUM CHLORIDE
     Indication: SEPSIS
     Dosage: 1000 ML, PRN
     Route: 042
     Dates: start: 20160211, end: 20160222
  6. VANCOMYCIN [Concomitant]
     Active Substance: VANCOMYCIN
     Dosage: 500 MG, UNKNOWN
     Route: 042
     Dates: start: 20160216, end: 20160216
  7. PREDNISOLONE (UNKNOWN) [Suspect]
     Active Substance: PREDNISOLONE
     Indication: PLASMA CELL MYELOMA
     Dosage: UNK, DOSAGE FORM: UNSPECIFIED, DAY 1 TO DAY 4
     Route: 048
     Dates: start: 20160202, end: 20160205
  8. ALLOPURINOL. [Concomitant]
     Active Substance: ALLOPURINOL
     Indication: TUMOUR LYSIS SYNDROME
     Dosage: 300 MG, DAILY
     Route: 048
     Dates: start: 20160216, end: 20160222
  9. CHLORPHENAMINE [Concomitant]
     Active Substance: CHLORPHENIRAMINE MALEATE
     Indication: RASH
     Dosage: 4 MG, DAILY
     Route: 048
     Dates: start: 20160212, end: 20160212
  10. CHLORPHENAMINE [Concomitant]
     Active Substance: CHLORPHENIRAMINE MALEATE
     Indication: RASH MACULAR
     Dosage: 4 MG, DAILY
     Route: 048
     Dates: start: 20160212, end: 20160212
  11. CITALOPRAM [Concomitant]
     Active Substance: CITALOPRAM HYDROBROMIDE
     Indication: BIPOLAR DISORDER
     Dosage: 20 MG, DAILY
     Route: 048
     Dates: start: 1995
  12. DALTEPARIN [Concomitant]
     Active Substance: DALTEPARIN
     Indication: THROMBOSIS
     Dosage: UNK UNK, DAILY
     Route: 058
     Dates: start: 20160212, end: 20160214
  13. GLUCOSE [Concomitant]
     Active Substance: DEXTROSE
     Indication: SEPSIS
     Dosage: 1000 ML, UNKNOWN
     Route: 042
     Dates: start: 20160213, end: 20160213
  14. MEROPENEM. [Concomitant]
     Active Substance: MEROPENEM
     Indication: SEPSIS
     Dosage: 1 G, TID
     Route: 042
     Dates: start: 20160213, end: 20160216
  15. PHOSPHATE SANDOZ [Concomitant]
     Dosage: 2 DF, DAILY, EFFERVESCENT
     Route: 048
     Dates: start: 20160215, end: 20160215
  16. ACICLOVIR [Concomitant]
     Active Substance: ACYCLOVIR
     Indication: VIRAL INFECTION
     Dosage: 400 MG, DAILY
     Route: 048
     Dates: start: 20160222
  17. ACICLOVIR [Concomitant]
     Active Substance: ACYCLOVIR
     Dosage: 300 MG, UNKNOWN
     Route: 048
     Dates: start: 20160219, end: 20160219
  18. DALTEPARIN [Concomitant]
     Active Substance: DALTEPARIN
     Dosage: 2500 IU, UNKNOWN
     Route: 058
     Dates: start: 20160222, end: 20160224
  19. PARACETAMOL [Concomitant]
     Active Substance: ACETAMINOPHEN
     Indication: SEPSIS
     Dosage: 1 G, PRN
     Route: 048
     Dates: start: 20160211
  20. ACICLOVIR [Concomitant]
     Active Substance: ACYCLOVIR
     Dosage: 500 MG, DAILY
     Route: 048
     Dates: start: 20160215, end: 20160216
  21. TAZOCIN [Concomitant]
     Active Substance: PIPERACILLIN SODIUM\TAZOBACTAM SODIUM
     Dosage: 4.5 G, UNK
     Route: 042
     Dates: start: 20160212, end: 20160212
  22. ZANAMIVIR [Concomitant]
     Active Substance: ZANAMIVIR
     Indication: DYSPNOEA
     Dosage: 5 MG, DAILY
     Route: 055
     Dates: start: 20160216
  23. DALTEPARIN [Concomitant]
     Active Substance: DALTEPARIN
     Dosage: 5000 IU, UNKNOWN
     Route: 058
     Dates: start: 20160221, end: 20160221
  24. LORAZEPAM. [Concomitant]
     Active Substance: LORAZEPAM
     Indication: BIPOLAR DISORDER
     Dosage: 1 MG, UNKNOWN
     Route: 048
     Dates: start: 20160225, end: 20160225
  25. VELCADE [Suspect]
     Active Substance: BORTEZOMIB
     Indication: PLASMA CELL MYELOMA
     Dosage: 2.15 MG, UNKNOWN, DOSAGE FORM: LYOPHILIZED POWDER, ON DAYS 1, 4, 8, 11, 22, 29
     Route: 058
     Dates: start: 20160202, end: 20160209
  26. LITHIUM CARBONATE. [Concomitant]
     Active Substance: LITHIUM CARBONATE
     Indication: BIPOLAR DISORDER
     Dosage: 200 MG, DAILY
     Route: 048
     Dates: start: 1995
  27. TAZOCIN [Concomitant]
     Active Substance: PIPERACILLIN SODIUM\TAZOBACTAM SODIUM
     Indication: SEPSIS
     Dosage: 4.5 G, UNKNOWN
     Route: 042
     Dates: start: 20160211, end: 20160211
  28. ALLOPURINOL. [Concomitant]
     Active Substance: ALLOPURINOL
     Dosage: 100 MG, DAILY
     Route: 048
     Dates: start: 20160223
  29. MEROPENEM. [Concomitant]
     Active Substance: MEROPENEM
     Dosage: 1 G, BID
     Route: 042
     Dates: start: 20160217, end: 20160217
  30. MEROPENEM. [Concomitant]
     Active Substance: MEROPENEM
     Dosage: 1 G, DAILY
     Route: 042
     Dates: start: 20160212, end: 20160212
  31. SALBUTAMOL [Concomitant]
     Active Substance: ALBUTEROL
     Indication: DYSPNOEA
     Dosage: 2.5 MG, UNKNOWN
     Route: 055
     Dates: start: 20160218, end: 20160218
  32. SEPTRIN [Concomitant]
     Active Substance: SULFAMETHOXAZOLE\TRIMETHOPRIM
     Indication: SEPSIS
     Dosage: UNK, DAILY
     Route: 048
     Dates: start: 20160216
  33. VANCOMYCIN [Concomitant]
     Active Substance: VANCOMYCIN
     Indication: SEPSIS
     Dosage: 500 MG, BID
     Route: 042
     Dates: start: 20160217, end: 20160217
  34. MELPHALAN [Suspect]
     Active Substance: MELPHALAN
     Indication: PLASMA CELL MYELOMA
     Dosage: UNK, DOSAGE FORM: UNSPECIFIED, DAY 1 TO DAY 4
     Route: 048
     Dates: start: 20160202, end: 20160205

REACTIONS (8)
  - Nausea [Unknown]
  - Rash macular [Unknown]
  - Dyspnoea [Unknown]
  - Rash [Unknown]
  - Neutropenia [Unknown]
  - Sepsis [Recovered/Resolved]
  - Dehydration [Unknown]
  - Confusional state [Unknown]

NARRATIVE: CASE EVENT DATE: 20160202
